FAERS Safety Report 25204005 (Version 1)
Quarter: 2025Q2

REPORT INFORMATION
  Report Type: Spontaneous
  Country: US (occurrence: US)
  Receive Date: 20250416
  Receipt Date: 20250416
  Transmission Date: 20250717
  Serious: Yes (Death, Other)
  Sender: AMGEN
  Company Number: US-AMGEN-USASP2025069644

PATIENT

DRUGS (1)
  1. BEVACIZUMAB [Suspect]
     Active Substance: BEVACIZUMAB
     Indication: Adenocarcinoma of appendix
     Route: 065

REACTIONS (5)
  - Death [Fatal]
  - Cardiomyopathy [Unknown]
  - Intestinal perforation [Unknown]
  - Abdominal wall abscess [Unknown]
  - Off label use [Unknown]
